FAERS Safety Report 9251568 (Version 1)
Quarter: 2013Q2

REPORT INFORMATION
  Report Type: Spontaneous
  Country: US (occurrence: US)
  Receive Date: 20130424
  Receipt Date: 20130424
  Transmission Date: 20140414
  Serious: No
  Sender: FDA-Public Use
  Company Number: US-PFIZER INC-2013128480

PATIENT
  Age: 59 Year
  Sex: Female
  Weight: 47.17 kg

DRUGS (3)
  1. CHANTIX [Suspect]
     Indication: SMOKING CESSATION THERAPY
     Dosage: UNK
  2. CHANTIX [Suspect]
     Dosage: 0.5 MG DAILY
     Dates: start: 2013, end: 2013
  3. CHANTIX [Suspect]
     Dosage: 0.5 MG, 2X/DAY
     Dates: start: 2013, end: 2013

REACTIONS (2)
  - Nausea [Unknown]
  - Abnormal dreams [Unknown]
